FAERS Safety Report 16626824 (Version 1)
Quarter: 2019Q3

REPORT INFORMATION
  Report Type: Spontaneous
  Country: US (occurrence: US)
  Receive Date: 20190724
  Receipt Date: 20190724
  Transmission Date: 20191004
  Serious: No
  Sender: FDA-Public Use
  Company Number: US-SA-2019SA193083

PATIENT
  Age: 47 Year
  Sex: Male

DRUGS (2)
  1. ALLEGRA D-12 HOUR [Suspect]
     Active Substance: FEXOFENADINE HYDROCHLORIDE\PSEUDOEPHEDRINE HYDROCHLORIDE
     Indication: HYPERSENSITIVITY
     Dosage: USUALLY 1 QD BUT SOMETIMES BID
  2. ALLEGRA D-12 HOUR [Suspect]
     Active Substance: FEXOFENADINE HYDROCHLORIDE\PSEUDOEPHEDRINE HYDROCHLORIDE
     Dosage: USUALLY 1 QD BUT SOMETIMES BID

REACTIONS (4)
  - Sinus disorder [Not Recovered/Not Resolved]
  - Product residue present [Unknown]
  - Nasal congestion [Not Recovered/Not Resolved]
  - Drug ineffective [Unknown]
